FAERS Safety Report 13919173 (Version 1)
Quarter: 2017Q3

REPORT INFORMATION
  Report Type: Spontaneous
  Country: US (occurrence: None)
  Receive Date: 20170828
  Receipt Date: 20170828
  Transmission Date: 20171127
  Serious: Yes (Hospitalization)
  Sender: FDA-Public Use
  Company Number: None

PATIENT
  Age: 70 Year
  Sex: Male

DRUGS (1)
  1. ENOXAPARIN (GENERIC) [Suspect]
     Active Substance: ENOXAPARIN
     Indication: KNEE ARTHROPLASTY
     Route: 058
     Dates: start: 20170601, end: 20170606

REACTIONS (8)
  - Tachycardia [None]
  - Pulmonary embolism [None]
  - Post procedural haemorrhage [None]
  - Pain [None]
  - Thrombocytopenia [None]
  - Bacteriuria [None]
  - Haemoglobin decreased [None]
  - Pyrexia [None]

NARRATIVE: CASE EVENT DATE: 20170606
